FAERS Safety Report 17834941 (Version 1)
Quarter: 2020Q2

REPORT INFORMATION
  Report Type: Spontaneous
  Country: MY (occurrence: MY)
  Receive Date: 20200528
  Receipt Date: 20200528
  Transmission Date: 20200714
  Serious: Yes (Other)
  Sender: FDA-Public Use
  Company Number: MY-CIPLA LTD.-2020MY03512

PATIENT

DRUGS (1)
  1. EFAVIR (EFAVIRENZ) [Suspect]
     Active Substance: EFAVIRENZ
     Indication: ANTIRETROVIRAL THERAPY
     Dosage: 600 MILLIGRAM, QD (PER DAY)
     Route: 048

REACTIONS (1)
  - Skin hyperpigmentation [Recovering/Resolving]
